FAERS Safety Report 6532879-1 (Version None)
Quarter: 2010Q1

REPORT INFORMATION
  Report Type: 
  Country: None (occurrence: None)
  Receive Date: 20100111
  Receipt Date: 20100106
  Transmission Date: 20100710
  Serious: Yes (Death, Other)
  Sender: FDA-Public Use
  Company Number: JP-ELI_LILLY_AND_COMPANY-JP200906006157

PATIENT
  Age: 65 Year
  Sex: Female

DRUGS (9)
  1. GEMZAR [Suspect]
     Indication: PANCREATIC CARCINOMA NON-RESECTABLE
     Dosage: 800 MG, OTHER
     Route: 042
     Dates: start: 20061101, end: 20060101
  2. GEMZAR [Suspect]
     Dosage: 600 MG, OTHER
     Route: 042
     Dates: start: 20061201, end: 20061201
  3. GEMZAR [Suspect]
     Dosage: 1000 MG, OTHER
     Route: 042
     Dates: end: 20070301
  4. GEMZAR [Suspect]
     Dosage: 800 MG, OTHER
     Route: 042
     Dates: start: 20070401, end: 20071101
  5. GEMZAR [Suspect]
     Dosage: 800 MG, OTHER
     Route: 042
     Dates: start: 20080101, end: 20080101
  6. GEMZAR [Suspect]
     Dosage: 600 MG, OTHER
     Route: 042
     Dates: start: 20080101, end: 20080401
  7. GEMZAR [Suspect]
     Dosage: 800 MG, OTHER
     Route: 042
     Dates: start: 20080501, end: 20080501
  8. GEMZAR [Suspect]
     Dosage: 600 MG, OTHER
     Route: 042
     Dates: start: 20080601, end: 20090101
  9. TS 1 /JPN/ [Concomitant]
     Indication: METASTASES TO PERITONEUM
     Dosage: 80 MG, DAILY (1/D)
     Route: 048
     Dates: start: 20080401, end: 20080501

REACTIONS (9)
  - ASCITES [None]
  - BACK PAIN [None]
  - BONE MARROW FAILURE [None]
  - INTESTINAL OBSTRUCTION [None]
  - METASTASES TO PERITONEUM [None]
  - OSTEOPOROSIS [None]
  - PLATELET COUNT DECREASED [None]
  - RASH [None]
  - WHITE BLOOD CELL COUNT DECREASED [None]
